FAERS Safety Report 12896963 (Version 1)
Quarter: 2016Q4

REPORT INFORMATION
  Report Type: Spontaneous
  Country: US (occurrence: US)
  Receive Date: 20161031
  Receipt Date: 20161031
  Transmission Date: 20170207
  Serious: No
  Sender: FDA-Public Use
  Company Number: US-PFIZER INC-2016280401

PATIENT
  Age: 13 Year
  Sex: Male

DRUGS (2)
  1. GENOTROPIN [Suspect]
     Active Substance: SOMATROPIN
     Dosage: 3.8 MG, 1X/DAY (AT BED TIME)
     Route: 058
     Dates: start: 20151028
  2. GENOTROPIN [Suspect]
     Active Substance: SOMATROPIN
     Dosage: 3.8 MG, (EVERYDAY)
     Route: 058
     Dates: start: 20160317

REACTIONS (1)
  - Epistaxis [Unknown]
